FAERS Safety Report 5615264-6 (Version None)
Quarter: 2008Q1

REPORT INFORMATION
  Report Type: 
  Country: None (occurrence: None)
  Receive Date: 20080206
  Receipt Date: 20080125
  Transmission Date: 20080703
  Serious: Yes (Other)
  Sender: FDA-Public Use
  Company Number: US-ROCHE-533398

PATIENT
  Sex: Female
  Weight: 59 kg

DRUGS (2)
  1. ACCUTANE [Suspect]
     Indication: ACNE
     Route: 065
     Dates: start: 19930501, end: 19931001
  2. ACCUTANE [Suspect]
     Route: 065
     Dates: start: 19940101, end: 19940301

REACTIONS (4)
  - ANAEMIA [None]
  - COLITIS ULCERATIVE [None]
  - INFLAMMATORY BOWEL DISEASE [None]
  - RHEUMATOID ARTHRITIS [None]
